FAERS Safety Report 6035322-4 (Version None)
Quarter: 2009Q1

REPORT INFORMATION
  Report Type: 
  Country: None (occurrence: None)
  Receive Date: 20090108
  Receipt Date: 20081219
  Transmission Date: 20090719
  Serious: Yes (Other)
  Sender: FDA-Public Use
  Company Number: DSU-2008-01592

PATIENT
  Age: 44 Year
  Sex: Female

DRUGS (2)
  1. OLMETEX         (OLMESARTAN MEDOXOMIL) [Suspect]
     Indication: HYPERTENSION
     Dosage: 20 MG (20 MG, QD), PER ORAL
     Route: 048
     Dates: start: 20080818, end: 20080901
  2. VALERIAN            (VALERIANA OFFICINALIS EXTRACT) [Concomitant]

REACTIONS (5)
  - CHEST PAIN [None]
  - DIZZINESS [None]
  - DYSPNOEA [None]
  - MALAISE [None]
  - TREMOR [None]
